FAERS Safety Report 11363836 (Version 1)
Quarter: 2015Q3

REPORT INFORMATION
  Report Type: Spontaneous
  Country: US (occurrence: US)
  Receive Date: 20150811
  Receipt Date: 20150811
  Transmission Date: 20151125
  Serious: No
  Sender: FDA-Public Use
  Company Number: US-009507513-1508USA003291

PATIENT
  Age: 18 Year
  Sex: Female
  Weight: 57.6 kg

DRUGS (2)
  1. NUVARING [Suspect]
     Active Substance: ETHINYL ESTRADIOL\ETONOGESTREL
     Indication: CONTRACEPTION
     Dosage: 1 DF, Q3W
     Route: 067
     Dates: start: 2010
  2. ANTACID (CALCIUM CARBONATE) [Concomitant]
     Active Substance: CALCIUM CARBONATE

REACTIONS (2)
  - Metrorrhagia [Unknown]
  - Vaginal discharge [Unknown]

NARRATIVE: CASE EVENT DATE: 201507
